FAERS Safety Report 13656440 (Version 1)
Quarter: 2017Q2

REPORT INFORMATION
  Report Type: Spontaneous
  Country: US (occurrence: US)
  Receive Date: 20170615
  Receipt Date: 20170615
  Transmission Date: 20170830
  Serious: Yes (Other)
  Sender: FDA-Public Use
  Company Number: None

PATIENT
  Age: 38 Year
  Sex: Female

DRUGS (1)
  1. COMPOUNDED LEUPROLIDE 3 WEEK KIT [Suspect]
     Active Substance: LEUPROLIDE ACETATE
     Indication: INFERTILITY
     Dates: start: 20170501, end: 20170522

REACTIONS (2)
  - Product compounding quality issue [None]
  - Drug ineffective [None]

NARRATIVE: CASE EVENT DATE: 20170417
